FAERS Safety Report 20976901 (Version 2)
Quarter: 2022Q2

REPORT INFORMATION
  Report Type: Spontaneous
  Country: FR (occurrence: FR)
  Receive Date: 20220617
  Receipt Date: 20220624
  Transmission Date: 20220721
  Serious: Yes (Hospitalization, Other)
  Sender: FDA-Public Use
  Company Number: FR-GILEAD-2022-0571986

PATIENT
  Age: 33 Year
  Sex: Male
  Weight: 50 kg

DRUGS (10)
  1. BIKTARVY [Interacting]
     Active Substance: BICTEGRAVIR SODIUM\EMTRICITABINE\TENOFOVIR ALAFENAMIDE FUMARATE
     Indication: HIV infection
     Dosage: UNK
     Route: 065
     Dates: start: 20210730, end: 20211018
  2. MINERALS\VITAMINS [Interacting]
     Active Substance: MINERALS\VITAMINS
     Indication: Unevaluable event
     Dosage: 1 DOSAGE FORM ON AN EMPTY STOMACH
     Route: 048
     Dates: end: 20211007
  3. ATOVAQUONE [Concomitant]
     Active Substance: ATOVAQUONE
     Indication: Prophylaxis
     Dosage: 5 ML
     Route: 048
     Dates: start: 202108, end: 20211217
  4. VALACYCLOVIR HYDROCHLORIDE [Concomitant]
     Active Substance: VALACYCLOVIR HYDROCHLORIDE
     Indication: Prophylaxis
     Dosage: 500 MG
     Route: 048
     Dates: start: 202108, end: 20211217
  5. KARDEGIC [Concomitant]
     Active Substance: ASPIRIN DL-LYSINE
     Indication: Cerebrovascular disorder
     Dosage: 160 MG
     Route: 048
     Dates: start: 202108, end: 20211217
  6. SERTRALINE [Concomitant]
     Active Substance: SERTRALINE HYDROCHLORIDE
     Indication: Affective disorder
     Dosage: 50 MG
     Route: 048
     Dates: start: 2019
  7. MIANSERIN HYDROCHLORIDE [Concomitant]
     Active Substance: MIANSERIN HYDROCHLORIDE
     Indication: Affective disorder
     Dosage: 10 MG
     Route: 048
     Dates: start: 202108
  8. ALPRAZOLAM [Concomitant]
     Active Substance: ALPRAZOLAM
     Indication: Sedative therapy
     Dosage: 25 MG
     Route: 048
     Dates: start: 202108
  9. ZINC [Concomitant]
     Active Substance: ZINC
  10. IRON [Concomitant]
     Active Substance: IRON

REACTIONS (3)
  - Drug resistance [Unknown]
  - Drug interaction [Recovered/Resolved]
  - Gene mutation [Unknown]

NARRATIVE: CASE EVENT DATE: 20210920
